FAERS Safety Report 26202234 (Version 1)
Quarter: 2025Q4

REPORT INFORMATION
  Report Type: Spontaneous
  Country: US (occurrence: US)
  Receive Date: 20251226
  Receipt Date: 20251226
  Transmission Date: 20260118
  Serious: No
  Sender: TARO
  Company Number: US-TARO PHARMACEUTICALS USA INC.-2025TAR01173

PATIENT

DRUGS (1)
  1. PROCTOSOL-HC [Suspect]
     Active Substance: HYDROCORTISONE
     Indication: Haemorrhoidal haemorrhage
     Dosage: UNK, AS NEEDED
     Route: 065

REACTIONS (1)
  - Drug ineffective [Unknown]
